FAERS Safety Report 6983594-1 (Version None)
Quarter: 2010Q3

REPORT INFORMATION
  Report Type: 
  Country: None (occurrence: None)
  Receive Date: 20100914
  Receipt Date: 20080821
  Transmission Date: 20110219
  Serious: No
  Sender: FDA-Public Use
  Company Number: US-WYE-H05697808

PATIENT
  Sex: Male

DRUGS (2)
  1. ADVIL LIQUI-GELS [Suspect]
     Indication: HEADACHE
     Dosage: 4 LIQUI-GELS AT ONE TIME X 1
     Route: 048
     Dates: start: 20080816, end: 20080816
  2. ALCOHOL [Suspect]
     Dosage: DRANK 3 OR 4 SHOTS OF RUM
     Route: 048
     Dates: start: 20080816, end: 20080816

REACTIONS (4)
  - ABDOMINAL PAIN UPPER [None]
  - CHEST PAIN [None]
  - DIZZINESS [None]
  - DRUG ADMINISTRATION ERROR [None]
